FAERS Safety Report 19086418 (Version 1)
Quarter: 2021Q2

REPORT INFORMATION
  Report Type: Spontaneous
  Country: US (occurrence: US)
  Receive Date: 20210402
  Receipt Date: 20210402
  Transmission Date: 20210717
  Serious: Yes (Other)
  Sender: FDA-Public Use
  Company Number: US-ROCHE-2756396

PATIENT
  Age: 65 Year
  Sex: Male
  Weight: 90.8 kg

DRUGS (11)
  1. VENCLEXTA [Suspect]
     Active Substance: VENETOCLAX
     Route: 048
     Dates: start: 20210125
  2. ALLOPURINOL. [Suspect]
     Active Substance: ALLOPURINOL
     Indication: PRODUCT USED FOR UNKNOWN INDICATION
     Route: 065
  3. GAZYVA [Suspect]
     Active Substance: OBINUTUZUMAB
     Indication: CHRONIC LYMPHOCYTIC LEUKAEMIA
     Route: 065
  4. VENCLEXTA [Suspect]
     Active Substance: VENETOCLAX
     Indication: CHRONIC LYMPHOCYTIC LEUKAEMIA
     Route: 048
     Dates: start: 20210111, end: 20210117
  5. VENCLEXTA [Suspect]
     Active Substance: VENETOCLAX
     Route: 048
     Dates: start: 20210118, end: 20210124
  6. ALLOPURINOL. [Suspect]
     Active Substance: ALLOPURINOL
     Route: 048
  7. VENCLEXTA [Suspect]
     Active Substance: VENETOCLAX
     Route: 048
     Dates: start: 2021
  8. ALLOPURINOL. [Suspect]
     Active Substance: ALLOPURINOL
     Route: 065
  9. ALLOPURINOL. [Suspect]
     Active Substance: ALLOPURINOL
     Route: 065
  10. GAZYVA [Concomitant]
     Active Substance: OBINUTUZUMAB
     Route: 042
  11. ALLOPURINOL. [Concomitant]
     Active Substance: ALLOPURINOL

REACTIONS (17)
  - Dizziness [Not Recovered/Not Resolved]
  - Adverse food reaction [Unknown]
  - Feeling abnormal [Unknown]
  - Constipation [Not Recovered/Not Resolved]
  - Abdominal neoplasm [Unknown]
  - Middle insomnia [Not Recovered/Not Resolved]
  - Fatigue [Not Recovered/Not Resolved]
  - Dehydration [Recovering/Resolving]
  - Urine output decreased [Unknown]
  - Feeling hot [Recovering/Resolving]
  - Pain in extremity [Recovering/Resolving]
  - Abdominal pain [Unknown]
  - Constipation [Recovered/Resolved]
  - Thirst [Recovering/Resolving]
  - Limb discomfort [Recovering/Resolving]
  - Restless legs syndrome [Recovering/Resolving]
  - Neuropathy peripheral [Recovering/Resolving]

NARRATIVE: CASE EVENT DATE: 2021
